FAERS Safety Report 12136284 (Version 1)
Quarter: 2016Q1

REPORT INFORMATION
  Report Type: Spontaneous
  Country: DE (occurrence: DE)
  Receive Date: 20160302
  Receipt Date: 20160302
  Transmission Date: 20160526
  Serious: Yes (Congenital Anomaly)
  Sender: FDA-Public Use
  Company Number: DE-SUN PHARMACEUTICAL INDUSTRIES LTD-2016RR-112420

PATIENT

DRUGS (4)
  1. LEVETIRACETAM. [Suspect]
     Active Substance: LEVETIRACETAM
     Indication: EPILEPSY
     Dosage: 4000 MG, DAILY
     Route: 064
     Dates: start: 20150224, end: 20150602
  2. LAMOTRIGIN [Concomitant]
     Active Substance: LAMOTRIGINE
     Indication: EPILEPSY
     Dosage: 25 MG, DAILY
     Route: 064
     Dates: start: 20150217, end: 20150224
  3. FOLSAURE [Concomitant]
     Active Substance: FOLIC ACID
     Indication: PROPHYLAXIS OF NEURAL TUBE DEFECT
     Route: 064
  4. CARBAMAZEPINE. [Suspect]
     Active Substance: CARBAMAZEPINE
     Indication: EPILEPSY
     Dosage: 1200 MG, DAILY
     Route: 064
     Dates: start: 20141226, end: 20150602

REACTIONS (1)
  - Congenital hydrocephalus [Not Recovered/Not Resolved]
